FAERS Safety Report 9723736 (Version 3)
Quarter: 2014Q1

REPORT INFORMATION
  Report Type: Spontaneous
  Country: US (occurrence: US)
  Receive Date: 20131202
  Receipt Date: 20140113
  Transmission Date: 20141002
  Serious: Yes (Death)
  Sender: FDA-Public Use
  Company Number: US-PFIZER INC-2013338608

PATIENT
  Age: 51 Year
  Sex: Male
  Weight: 73.3 kg

DRUGS (5)
  1. INLYTA [Suspect]
     Indication: NEOPLASM MALIGNANT
     Dosage: 5 MG, 2X/DAY
     Route: 048
     Dates: start: 20130827, end: 20131111
  2. INLYTA [Suspect]
     Indication: RENAL CELL CARCINOMA
  3. SUBLIMAZE [Concomitant]
     Indication: SEDATIVE THERAPY
     Dosage: 25 UG, UNK
     Route: 042
  4. VERSED [Concomitant]
     Indication: SEDATIVE THERAPY
     Dosage: 2 MG, UNK
     Route: 042
  5. BENADRYL [Concomitant]
     Indication: SEDATIVE THERAPY
     Dosage: 50 MG, UNK
     Route: 042

REACTIONS (2)
  - Disease progression [Fatal]
  - Renal cell carcinoma [Fatal]
